FAERS Safety Report 7282750-5 (Version None)
Quarter: 2011Q1

REPORT INFORMATION
  Report Type: 
  Country: None (occurrence: None)
  Receive Date: 20110209
  Receipt Date: 20110131
  Transmission Date: 20110831
  Serious: Yes (Hospitalization, Other)
  Sender: FDA-Public Use
  Company Number: PHHO2011IT01421

PATIENT
  Sex: Female
  Weight: 86 kg

DRUGS (9)
  1. ALISKIREN [Suspect]
     Indication: CARDIAC FAILURE
  2. BLINDED ALISKIREN [Suspect]
     Dosage: CODE NOT BROKEN
     Route: 048
     Dates: start: 20101110
  3. WARFARIN SODIUM [Concomitant]
  4. ENALAPRIL MALEATE [Suspect]
     Dosage: CODE NOT BROKEN
     Route: 048
     Dates: start: 20101110
  5. COMPARATOR ENALAPRIL [Suspect]
     Indication: CARDIAC FAILURE
  6. ATORVASTATIN [Concomitant]
  7. LANTUS [Concomitant]
  8. BLINDED NO TREATMENT RECEIVED [Suspect]
     Dosage: CODE NOT BROKEN
     Route: 048
     Dates: start: 20101110
  9. CARVEDILOL [Concomitant]

REACTIONS (7)
  - CARDIAC FAILURE ACUTE [None]
  - DYSPNOEA [None]
  - BUNDLE BRANCH BLOCK [None]
  - ACUTE RESPIRATORY FAILURE [None]
  - DISEASE PROGRESSION [None]
  - BLOOD POTASSIUM DECREASED [None]
  - HYPERGLYCAEMIA [None]
